FAERS Safety Report 7849582-8 (Version None)
Quarter: 2011Q4

REPORT INFORMATION
  Report Type: 
  Country: None (occurrence: None)
  Receive Date: 20111026
  Receipt Date: 20111017
  Transmission Date: 20120403
  Serious: Yes (Disabling)
  Sender: FDA-Public Use
  Company Number: AU-JNJFOC-20111009713

PATIENT
  Sex: Male
  Weight: 46 kg

DRUGS (1)
  1. CONCERTA [Suspect]
     Indication: PRODUCT USED FOR UNKNOWN INDICATION
     Route: 048
     Dates: start: 20090512, end: 20090616

REACTIONS (7)
  - INSOMNIA [None]
  - PAIN [None]
  - PHOTOPHOBIA [None]
  - AGITATION [None]
  - DRUG INEFFECTIVE [None]
  - ABDOMINAL PAIN [None]
  - DISTURBANCE IN ATTENTION [None]
